FAERS Safety Report 4660267-1 (Version None)
Quarter: 2005Q2

REPORT INFORMATION
  Report Type: 
  Country: None (occurrence: None)
  Receive Date: 20050512
  Receipt Date: 20050502
  Transmission Date: 20051028
  Serious: Yes (Hospitalization)
  Sender: FDA-Public Use
  Company Number: US-GLAXOSMITHKLINE-A0556840A

PATIENT
  Age: 65 Year
  Sex: Female
  Weight: 49 kg

DRUGS (30)
  1. SENSODYNE-F [Suspect]
     Indication: DENTAL CARE
     Dates: start: 19850101, end: 20050401
  2. SENSODYNE-F [Suspect]
     Indication: DENTAL CARE
     Dates: start: 20050401
  3. SPIRONOLACTONE [Concomitant]
     Indication: OEDEMA
     Dosage: 50MG TWICE PER DAY
     Route: 048
  4. LASIX [Concomitant]
     Dosage: 120MG TWICE PER DAY
     Route: 048
  5. ZAROXOLYN [Concomitant]
     Dosage: 2.5MG PER DAY
     Route: 048
  6. MICRO-K [Concomitant]
     Dosage: 10MEQ FOUR TIMES PER DAY
     Route: 048
  7. MYSOLINE [Concomitant]
     Dosage: 150MG TWICE PER DAY
     Route: 048
  8. LEXAPRO [Concomitant]
     Dosage: 40MG PER DAY
     Route: 048
  9. RESTORIL [Concomitant]
     Indication: INSOMNIA
     Dosage: 30MG PER DAY
     Route: 048
  10. ARICEPT [Concomitant]
     Dosage: 5MG PER DAY
     Route: 048
  11. FOSAMAX [Concomitant]
     Dosage: 35MG WEEKLY
     Route: 048
  12. CELEBREX [Concomitant]
     Dosage: 200MG TWICE PER DAY
     Route: 048
  13. SOMA [Concomitant]
     Indication: MUSCLE SPASMS
     Dosage: 350MG AS REQUIRED
  14. BECONASE [Concomitant]
  15. ALLOPURINOL [Concomitant]
     Dosage: 300MG PER DAY
  16. ASPIRIN [Concomitant]
     Dosage: 325MG PER DAY
     Route: 048
  17. PREDNISONE [Concomitant]
     Dosage: 5MG PER DAY
     Route: 048
  18. DARVOCET [Concomitant]
     Dosage: 100MG AS REQUIRED
  19. INDERAL [Concomitant]
     Dosage: 10MG THREE TIMES PER DAY
     Route: 048
  20. TAGAMET [Concomitant]
     Indication: PROPHYLAXIS
     Dosage: 800MG AS REQUIRED
  21. PREMARIN [Concomitant]
     Dosage: .63MG PER DAY
     Route: 048
  22. TOPAMAX [Concomitant]
     Dosage: 37.5MG TWICE PER DAY
     Route: 048
  23. IRON SUPPLEMENT [Concomitant]
     Indication: NUTRITIONAL SUPPORT
  24. ELAVIL [Concomitant]
     Dosage: 50MG PER DAY
     Route: 048
  25. XANAX [Concomitant]
     Indication: ANXIETY
     Dosage: .5MG AS REQUIRED
     Route: 048
  26. EVOXAC [Concomitant]
     Indication: DRY MOUTH
     Dosage: 30MG THREE TIMES PER DAY
     Route: 048
  27. ACIPHEX [Concomitant]
     Dosage: 20MG PER DAY
     Route: 048
  28. PROCARDIA [Concomitant]
     Dosage: 30MG PER DAY
     Route: 048
  29. METHOTREXATE [Concomitant]
     Indication: ARTHRITIS
     Dosage: 7.5MG WEEKLY
     Route: 048
  30. OCEAN SPRAY [Concomitant]

REACTIONS (5)
  - COELIAC DISEASE [None]
  - ORAL DISCOMFORT [None]
  - ORAL PAIN [None]
  - OSTEOARTHRITIS [None]
  - SYSTEMIC LUPUS ERYTHEMATOSUS [None]
